FAERS Safety Report 12129518 (Version 1)
Quarter: 2016Q1

REPORT INFORMATION
  Report Type: Spontaneous
  Country: US (occurrence: US)
  Receive Date: 20160229
  Receipt Date: 20160229
  Transmission Date: 20160526
  Serious: No
  Sender: FDA-Public Use
  Company Number: US-ACORDA-ACO_20699_2010

PATIENT
  Age: 64 Year
  Sex: Female
  Weight: 65.76 kg

DRUGS (6)
  1. AMPYRA [Suspect]
     Active Substance: DALFAMPRIDINE
     Dosage: UNK
  2. AMPYRA [Suspect]
     Active Substance: DALFAMPRIDINE
     Indication: MULTIPLE SCLEROSIS
     Dosage: 10 MG, BID
     Route: 048
     Dates: start: 20101118, end: 20101130
  3. AMPYRA [Suspect]
     Active Substance: DALFAMPRIDINE
     Indication: GAIT DISTURBANCE
     Dosage: 10 MG, QD
     Dates: start: 201011, end: 20101118
  4. ACETAMINOPHEN. [Concomitant]
     Active Substance: ACETAMINOPHEN
     Dosage: UNK
  5. DITROPAN [Concomitant]
     Active Substance: OXYBUTYNIN CHLORIDE
     Dosage: UNK
  6. SERTRALINE [Concomitant]
     Active Substance: SERTRALINE HYDROCHLORIDE
     Dosage: UNK

REACTIONS (14)
  - Joint stiffness [Recovering/Resolving]
  - Drug ineffective [Recovering/Resolving]
  - Balance disorder [Unknown]
  - Urinary retention [Unknown]
  - Urinary incontinence [Recovering/Resolving]
  - Musculoskeletal stiffness [Unknown]
  - Mood swings [Unknown]
  - Decreased interest [Unknown]
  - Depressed mood [Unknown]
  - Oedema peripheral [Unknown]
  - Inappropriate schedule of drug administration [Recovering/Resolving]
  - Balance disorder [Recovering/Resolving]
  - Musculoskeletal stiffness [Recovering/Resolving]
  - Multiple sclerosis relapse [Recovering/Resolving]

NARRATIVE: CASE EVENT DATE: 201011
